FAERS Safety Report 10252341 (Version 1)
Quarter: 2014Q2

REPORT INFORMATION
  Report Type: Spontaneous
  Country: US (occurrence: None)
  Receive Date: 20140620
  Receipt Date: 20140620
  Transmission Date: 20141212
  Serious: No
  Sender: FDA-Public Use
  Company Number: None

PATIENT
  Age: 64 Year
  Sex: Male

DRUGS (4)
  1. TIKOSYN 500 MCG PFIZER LABORATORIES DIV PFIZER INC [Suspect]
     Route: 048
     Dates: start: 20130214
  2. TRAMADOL [Concomitant]
  3. LASIX [Concomitant]
  4. SPIRONOLACTONE [Concomitant]

REACTIONS (1)
  - Cerebrovascular accident [None]
